FAERS Safety Report 4317146-9 (Version None)
Quarter: 2004Q1

REPORT INFORMATION
  Report Type: 
  Country: None (occurrence: None)
  Receive Date: 20040312
  Receipt Date: 20040227
  Transmission Date: 20041129
  Serious: No
  Sender: FDA-Public Use
  Company Number: 2003AP04510

PATIENT
  Age: 52 Year
  Sex: Female

DRUGS (7)
  1. SEROQUEL [Suspect]
     Indication: SCHIZOPHRENIA
     Dosage: 25 MG TID PO
     Route: 048
     Dates: start: 20020517, end: 20021202
  2. RISPERDAL [Concomitant]
  3. AKINETON [Concomitant]
  4. LULLAN [Concomitant]
  5. LODOPIN [Concomitant]
  6. AMARYL [Concomitant]
  7. ROHYPNOL [Concomitant]

REACTIONS (4)
  - BLOOD GLUCOSE INCREASED [None]
  - GLYCOSYLATED HAEMOGLOBIN INCREASED [None]
  - HYPERPHAGIA [None]
  - POLYDIPSIA [None]
